FAERS Safety Report 9455480 (Version 2)
Quarter: 2014Q1

REPORT INFORMATION
  Report Type: Spontaneous
  Country: US (occurrence: US)
  Receive Date: 20130813
  Receipt Date: 20140109
  Transmission Date: 20141002
  Serious: Yes (Other)
  Sender: FDA-Public Use
  Company Number: US-BAYER-2013-096293

PATIENT
  Age: 17 Year
  Sex: Female
  Weight: 65.31 kg

DRUGS (2)
  1. MIRENA [Suspect]
     Indication: CONTRACEPTION
     Dosage: 20 MCG/24HR, CONT
     Route: 015
     Dates: start: 20130424
  2. MIRENA [Suspect]
     Indication: CONTRACEPTION

REACTIONS (4)
  - Dyspareunia [None]
  - Coital bleeding [None]
  - Genital haemorrhage [Not Recovered/Not Resolved]
  - Device use error [None]
